FAERS Safety Report 6083408-0 (Version None)
Quarter: 2009Q1

REPORT INFORMATION
  Report Type: 
  Country: None (occurrence: None)
  Receive Date: 20090217
  Receipt Date: 20090202
  Transmission Date: 20090719
  Serious: Yes (Hospitalization)
  Sender: FDA-Public Use
  Company Number: 230479K09USA

PATIENT
  Age: 55 Year
  Sex: Female
  Weight: 91 kg

DRUGS (5)
  1. REBIF [Suspect]
     Indication: MULTIPLE SCLEROSIS
     Dosage: 44 MCG, 3 IN 1 WEEKS, SUBCUTANEOUS
     Route: 058
     Dates: start: 20040607
  2. NAPROXEN [Concomitant]
  3. AMANTADINE HCL [Concomitant]
  4. LISINOPRIL AND HYDROCHLOROTHIAZIDE (PRINZIDE /00977901/) [Concomitant]
  5. CIPRO [Concomitant]

REACTIONS (3)
  - BLADDER PROLAPSE [None]
  - HAEMORRHAGE [None]
  - INTESTINAL PROLAPSE [None]
